FAERS Safety Report 23643783 (Version 1)
Quarter: 2024Q1

REPORT INFORMATION
  Report Type: Spontaneous
  Country: US (occurrence: None)
  Receive Date: 20240316
  Receipt Date: 20240316
  Transmission Date: 20240410
  Serious: Yes (Disabling)
  Sender: FDA-Public Use
  Company Number: None

PATIENT
  Age: 32 Year
  Sex: Female
  Weight: 46.8 kg

DRUGS (3)
  1. FLAGYL [Suspect]
     Active Substance: METRONIDAZOLE\METRONIDAZOLE HYDROCHLORIDE
     Indication: Bacterial vaginosis
     Dosage: 4 TABLETS EVERY 12 HOURS ORAL
     Route: 048
     Dates: start: 20231128, end: 20231201
  2. MAGNESIUM [Concomitant]
     Active Substance: MAGNESIUM
  3. B1 [Concomitant]

REACTIONS (8)
  - Neuropathy peripheral [None]
  - Muscle spasms [None]
  - Gait disturbance [None]
  - Neck pain [None]
  - Visual impairment [None]
  - Dyspnoea [None]
  - Gastrointestinal disorder [None]
  - Eye pain [None]

NARRATIVE: CASE EVENT DATE: 20231201
